FAERS Safety Report 15369136 (Version 1)
Quarter: 2018Q3

REPORT INFORMATION
  Report Type: Spontaneous
  Country: GR (occurrence: GR)
  Receive Date: 20180911
  Receipt Date: 20180911
  Transmission Date: 20181010
  Serious: Yes (Life-Threatening)
  Sender: FDA-Public Use
  Company Number: GR-HTU-2018GR017508

PATIENT
  Age: 77 Year
  Sex: Female
  Weight: 80 kg

DRUGS (1)
  1. ALOXI [Suspect]
     Active Substance: PALONOSETRON HYDROCHLORIDE
     Indication: PROPHYLAXIS OF NAUSEA AND VOMITING
     Dosage: 1 DOSAGE FORM, SINGLE
     Route: 042
     Dates: start: 20180813, end: 20180813

REACTIONS (5)
  - Bronchospasm [Recovering/Resolving]
  - Dyspnoea [Recovering/Resolving]
  - PO2 decreased [Recovering/Resolving]
  - Erythema [Recovering/Resolving]
  - Heart rate increased [Recovering/Resolving]

NARRATIVE: CASE EVENT DATE: 20180813
